FAERS Safety Report 4876205-2 (Version None)
Quarter: 2006Q1

REPORT INFORMATION
  Report Type: 
  Country: None (occurrence: None)
  Receive Date: 20060110
  Receipt Date: 20051230
  Transmission Date: 20060701
  Serious: Yes (Death)
  Sender: FDA-Public Use
  Company Number: US-BRISTOL-MYERS SQUIBB COMPANY-13233234

PATIENT
  Age: 86 Year
  Sex: Female
  Weight: 57 kg

DRUGS (1)
  1. ABILIFY [Suspect]
     Indication: DEMENTIA ALZHEIMER'S TYPE
     Dates: start: 20050501

REACTIONS (1)
  - DEATH [None]
